FAERS Safety Report 17728632 (Version 2)
Quarter: 2020Q2

REPORT INFORMATION
  Report Type: Spontaneous
  Country: AU (occurrence: AU)
  Receive Date: 20200430
  Receipt Date: 20200610
  Transmission Date: 20200714
  Serious: Yes (Other)
  Sender: FDA-Public Use
  Company Number: AU-PFIZER INC-2020171650

PATIENT

DRUGS (1)
  1. HEPARIN SODIUM. [Suspect]
     Active Substance: HEPARIN SODIUM
     Dosage: 5000 IU, 2X/DAY
     Route: 058

REACTIONS (2)
  - Drug ineffective [Unknown]
  - Pulmonary embolism [Unknown]
